FAERS Safety Report 8551910-5 (Version None)
Quarter: 2012Q3

REPORT INFORMATION
  Report Type: 
  Country: None (occurrence: None)
  Receive Date: 20120730
  Receipt Date: 20120720
  Transmission Date: 20120928
  Serious: Yes (Hospitalization)
  Sender: FDA-Public Use
  Company Number: US-JNJFOC-20120710953

PATIENT
  Sex: Female
  Weight: 51.9 kg

DRUGS (10)
  1. PREDNISONE TAB [Concomitant]
  2. OMEPRAZOLE [Concomitant]
  3. REMICADE [Suspect]
     Indication: INFLAMMATORY BOWEL DISEASE
     Route: 042
     Dates: start: 20110418
  4. NYSTATIN [Concomitant]
  5. VITAMIN TAB [Concomitant]
  6. AZATHIOPRINE [Concomitant]
  7. MELATONIN [Concomitant]
  8. MULTI-VITAMINS [Concomitant]
  9. OXYCODONE/ACETAMINOPHEN [Concomitant]
  10. REMICADE [Suspect]
     Route: 042
     Dates: start: 20110502

REACTIONS (1)
  - CHEST PAIN [None]
